FAERS Safety Report 23588757 (Version 2)
Quarter: 2024Q1

REPORT INFORMATION
  Report Type: Spontaneous
  Country: GB (occurrence: GB)
  Receive Date: 20240303
  Receipt Date: 20240321
  Transmission Date: 20240409
  Serious: Yes (Life-Threatening, Hospitalization, Disabling, Other)
  Sender: FDA-Public Use
  Company Number: None

PATIENT
  Age: 63 Year
  Sex: Male
  Weight: 80 kg

DRUGS (1)
  1. ESCITALOPRAM [Suspect]
     Active Substance: ESCITALOPRAM OXALATE
     Indication: Depression
     Dosage: IN THE MORNING
     Route: 048
     Dates: start: 20240104

REACTIONS (6)
  - Sleep terror [Not Recovered/Not Resolved]
  - Fall [Unknown]
  - Anxiety disorder [Unknown]
  - Intentional self-injury [Unknown]
  - Mental disorder [Unknown]
  - Abnormal dreams [Unknown]

NARRATIVE: CASE EVENT DATE: 20240220
